FAERS Safety Report 7599732-6 (Version None)
Quarter: 2011Q2

REPORT INFORMATION
  Report Type: 
  Country: None (occurrence: None)
  Receive Date: 20110620
  Receipt Date: 20110309
  Transmission Date: 20111010
  Serious: Yes (Hospitalization)
  Sender: FDA-Public Use
  Company Number: UTC-005647

PATIENT
  Age: 36 Year
  Sex: Female

DRUGS (3)
  1. TRACLEER [Concomitant]
  2. TYVASO [Suspect]
     Indication: PULMONARY ARTERIAL HYPERTENSION
     Dosage: 216MCG (54 MCG,4IN1D)
     Route: 055
     Dates: start: 20091105
  3. REVATIO [Concomitant]

REACTIONS (2)
  - SYNCOPE [None]
  - EPISTAXIS [None]
